FAERS Safety Report 7203318-2 (Version None)
Quarter: 2010Q4

REPORT INFORMATION
  Report Type: 
  Country: None (occurrence: None)
  Receive Date: 20101230
  Receipt Date: 20101220
  Transmission Date: 20110411
  Serious: No
  Sender: FDA-Public Use
  Company Number: US-BIOGENIDEC-2010BI044454

PATIENT
  Age: 35 Year
  Sex: Male

DRUGS (1)
  1. AVONEX [Suspect]
     Indication: MULTIPLE SCLEROSIS
     Route: 030
     Dates: start: 20101219

REACTIONS (5)
  - FALL [None]
  - LOSS OF CONTROL OF LEGS [None]
  - MOBILITY DECREASED [None]
  - PAIN [None]
  - PYREXIA [None]
